FAERS Safety Report 23057292 (Version 1)
Quarter: 2023Q4

REPORT INFORMATION
  Report Type: Spontaneous
  Country: DE (occurrence: DE)
  Receive Date: 20231012
  Receipt Date: 20231012
  Transmission Date: 20240110
  Serious: Yes (Other)
  Sender: FDA-Public Use
  Company Number: DE-Merck Healthcare KGaA-2023476815

PATIENT
  Age: 72 Year
  Sex: Female
  Weight: 54 kg

DRUGS (1)
  1. EUTHYROX [Suspect]
     Active Substance: LEVOTHYROXINE SODIUM
     Indication: Hypothyroidism
     Dosage: EUTHYROX 75 MCG TABLETS

REACTIONS (14)
  - Suicidal ideation [Unknown]
  - Depression [Not Recovered/Not Resolved]
  - Chest pain [Unknown]
  - Seasonal allergy [Unknown]
  - Neurodermatitis [Unknown]
  - Amnesia [Unknown]
  - Menopausal symptoms [Unknown]
  - Micturition urgency [Unknown]
  - Weight increased [Unknown]
  - Feeling hot [Unknown]
  - Erythema [Unknown]
  - Hot flush [Unknown]
  - Diarrhoea [Not Recovered/Not Resolved]
  - Product dose omission issue [Unknown]
